FAERS Safety Report 6725235-4 (Version None)
Quarter: 2010Q2

REPORT INFORMATION
  Report Type: 
  Country: None (occurrence: None)
  Receive Date: 20100512
  Receipt Date: 20100507
  Transmission Date: 20101027
  Serious: Yes (Death)
  Sender: FDA-Public Use
  Company Number: 2010SP025963

PATIENT
  Age: 40 Year
  Sex: Female

DRUGS (3)
  1. TEMODAL [Suspect]
     Indication: GLIOBLASTOMA MULTIFORME
  2. DEPAKENE [Concomitant]
  3. NEUPOGEN [Concomitant]

REACTIONS (1)
  - BONE MARROW FAILURE [None]
